FAERS Safety Report 10627975 (Version 1)
Quarter: 2014Q4

REPORT INFORMATION
  Report Type: Spontaneous
  Country: US (occurrence: US)
  Receive Date: 20141205
  Receipt Date: 20141205
  Transmission Date: 20150529
  Serious: No
  Sender: FDA-Public Use
  Company Number: US-BRISTOL-MYERS SQUIBB COMPANY-20172854

PATIENT
  Age: 78 Year
  Sex: Female
  Weight: 83.9 kg

DRUGS (5)
  1. DEMADEX [Concomitant]
     Active Substance: TORSEMIDE
  2. DUEXIS [Concomitant]
     Active Substance: FAMOTIDINE\IBUPROFEN
     Dosage: 1DF:800/150 MG EVERY MORNING.
  3. ERBITUX [Suspect]
     Active Substance: CETUXIMAB
     Indication: HEAD AND NECK CANCER
  4. VITAMIN [Concomitant]
     Active Substance: VITAMINS
  5. LEVOTHYROXINE [Concomitant]
     Active Substance: LEVOTHYROXINE

REACTIONS (2)
  - Catheter site discolouration [Unknown]
  - Feeling hot [Unknown]
